FAERS Safety Report 7382565-3 (Version None)
Quarter: 2011Q1

REPORT INFORMATION
  Report Type: 
  Country: None (occurrence: None)
  Receive Date: 20110329
  Receipt Date: 20110322
  Transmission Date: 20110831
  Serious: Yes (Hospitalization, Other)
  Sender: FDA-Public Use
  Company Number: US-SANOFI-AVENTIS-2011SA018056

PATIENT
  Age: 70 Year
  Sex: Male

DRUGS (11)
  1. PLAVIX [Suspect]
     Indication: STENT PLACEMENT
     Route: 048
     Dates: start: 20030101, end: 20110101
  2. MULTI-VITAMINS [Concomitant]
  3. NICOTINE [Suspect]
     Route: 065
     Dates: end: 20090101
  4. ISOSORBIDE DINITRATE [Concomitant]
  5. HYDROCHLOROTHIAZIDE [Concomitant]
  6. PLAVIX [Suspect]
     Route: 048
     Dates: start: 20030101, end: 20110101
  7. LISINOPRIL [Concomitant]
  8. ALLOPURINOL [Concomitant]
  9. PLAVIX [Suspect]
     Route: 048
     Dates: start: 20110101
  10. PLAVIX [Suspect]
     Route: 048
     Dates: start: 20110101
  11. METOPROLOL TARTRATE [Concomitant]

REACTIONS (2)
  - MYOCARDIAL INFARCTION [None]
  - LARYNGEAL CANCER STAGE IV [None]
